FAERS Safety Report 6032859-9 (Version None)
Quarter: 2009Q1

REPORT INFORMATION
  Report Type: 
  Country: None (occurrence: None)
  Receive Date: 20090105
  Receipt Date: 20081027
  Transmission Date: 20090719
  Serious: Yes (Hospitalization)
  Sender: FDA-Public Use
  Company Number: US-002052

PATIENT
  Age: 68 Year
  Sex: Male

DRUGS (3)
  1. PROHANCE [Suspect]
     Indication: NUCLEAR MAGNETIC RESONANCE IMAGING BRAIN
     Dosage: 17ML QD INTRAVENOUS
     Route: 042
     Dates: start: 20081014, end: 20081014
  2. NITRO-PATCH (GLYCERYL TRINITRATE) [Concomitant]
  3. ISOSORBIDE DINITRATE [Concomitant]

REACTIONS (1)
  - CHEST PAIN [None]
